FAERS Safety Report 4712935-0 (Version None)
Quarter: 2005Q3

REPORT INFORMATION
  Report Type: 
  Country: None (occurrence: None)
  Receive Date: 20050713
  Receipt Date: 20050303
  Transmission Date: 20060218
  Serious: Yes (Other)
  Sender: FDA-Public Use
  Company Number: 200511763US

PATIENT
  Sex: Male
  Weight: 105 kg

DRUGS (6)
  1. LANTUS [Suspect]
     Indication: DIABETES MELLITUS
     Route: 058
     Dates: start: 20020401
  2. AMARYL [Concomitant]
     Indication: DIABETES MELLITUS NON-INSULIN-DEPENDENT
     Route: 048
     Dates: start: 20031228
  3. LIPITOR [Concomitant]
     Indication: HYPERLIPIDAEMIA
     Route: 048
     Dates: start: 20050419
  4. HYDROCHLOROTHIAZIDE [Concomitant]
     Route: 048
     Dates: start: 20020916
  5. ATENOLOL [Concomitant]
     Route: 048
     Dates: start: 20021230
  6. REGULAR INSULIN [Concomitant]
     Dosage: DOSE UNIT: UNITS
     Route: 058
     Dates: start: 20050401

REACTIONS (6)
  - ASTHENIA [None]
  - DIABETIC RETINOPATHY [None]
  - DIZZINESS [None]
  - MACULAR OEDEMA [None]
  - VISION BLURRED [None]
  - VISUAL ACUITY REDUCED [None]
